FAERS Safety Report 9413472 (Version 2)
Quarter: 2013Q3

REPORT INFORMATION
  Report Type: Spontaneous
  Country: ES (occurrence: None)
  Receive Date: 20130717
  Receipt Date: 20130808
  Transmission Date: 20140515
  Serious: Yes (Hospitalization, Other)
  Sender: FDA-Public Use
  Company Number: NSR_01197_2013

PATIENT
  Age: 69 Year
  Sex: Female

DRUGS (5)
  1. TRAMADOL [Suspect]
     Indication: PRODUCT USED FOR UNKNOWN INDICATION
     Dosage: (DF)
  2. THYROXINE (UNKNOWN) [Concomitant]
  3. ANALGESICS (UNKNOWN) [Concomitant]
  4. ISRS (UNKNOWN) [Concomitant]
  5. BENZODIAZEPINE RELATED DRUGS (UNKNOWN) [Concomitant]

REACTIONS (4)
  - Hallucination, auditory [None]
  - Decreased appetite [None]
  - Pressure of speech [None]
  - Anxiety [None]
